FAERS Safety Report 6849140-8 (Version None)
Quarter: 2010Q3

REPORT INFORMATION
  Report Type: 
  Country: None (occurrence: None)
  Receive Date: 20100716
  Receipt Date: 20100706
  Transmission Date: 20110219
  Serious: Yes (Hospitalization, Other)
  Sender: FDA-Public Use
  Company Number: PHEH2006US10879

PATIENT
  Sex: Male
  Weight: 83.9 kg

DRUGS (9)
  1. ZOMETA [Suspect]
  2. LOPRESSOR [Concomitant]
     Dosage: 25 MG, QD
  3. IMDUR [Concomitant]
     Dosage: 30 MG, QD
  4. METOPROLOL [Concomitant]
     Dosage: 50 MG, UNK
  5. FAMOTIDINE [Concomitant]
     Dosage: 20 MG, UNK
  6. DIAZEPAM [Concomitant]
     Dosage: 5 MG, UNK
  7. TEMAZEPAM [Concomitant]
     Dosage: 15 MG, UNK
  8. CALCIUM CHLORIDE [Concomitant]
  9. PLAVIX [Concomitant]
     Dosage: 75 MG, QD

REACTIONS (26)
  - ANXIETY [None]
  - ARTHRALGIA [None]
  - BLADDER OBSTRUCTION [None]
  - DISORIENTATION [None]
  - GINGIVAL ATROPHY [None]
  - HYDRONEPHROSIS [None]
  - HYPOTENSION [None]
  - INJURY [None]
  - INSOMNIA [None]
  - INTERVERTEBRAL DISC PROTRUSION [None]
  - LETHARGY [None]
  - LUMBAR SPINAL STENOSIS [None]
  - LYMPHADENOPATHY [None]
  - MUSCULOSKELETAL PAIN [None]
  - ORTHOSTATIC HYPOTENSION [None]
  - OSTEONECROSIS OF JAW [None]
  - PAIN [None]
  - PENILE OEDEMA [None]
  - PNEUMONIA [None]
  - PYREXIA [None]
  - RENAL FAILURE CHRONIC [None]
  - RETROPERITONEAL LYMPHADENOPATHY [None]
  - SEPSIS [None]
  - URETERAL STENT INSERTION [None]
  - URETERIC OBSTRUCTION [None]
  - URINARY TRACT INFECTION [None]
